FAERS Safety Report 5235996-1 (Version None)
Quarter: 2007Q1

REPORT INFORMATION
  Report Type: 
  Country: None (occurrence: None)
  Receive Date: 20070212
  Receipt Date: 20070201
  Transmission Date: 20070707
  Serious: Yes (Life-Threatening, Hospitalization)
  Sender: FDA-Public Use
  Company Number: ES-ROCHE-472840

PATIENT
  Age: 33 Year
  Sex: Female
  Weight: 110 kg

DRUGS (6)
  1. ZENAPAX [Suspect]
     Indication: MULTIPLE SCLEROSIS
     Dosage: THE LAST DOSE OF DACLIZUMAB WAS ADMINISTERED ON 09/08/06 WHICH SIGNIFIED THE COMPLETION OF THE PRES+
     Route: 058
     Dates: start: 20060322, end: 20060809
  2. INTERFERON BETA-1A [Concomitant]
     Indication: MULTIPLE SCLEROSIS
     Dates: start: 20050615
  3. CLORAZEPATE [Concomitant]
     Dates: start: 20030615
  4. MICRODIOL [Concomitant]
     Dates: start: 19940615
  5. ORLISTAT [Concomitant]
  6. 1 CONCOMITANT DRUG [Concomitant]
     Dosage: DRUG NAME REPORTED AS ETHYNILESTRADIOL.

REACTIONS (3)
  - INTERSTITIAL LUNG DISEASE [None]
  - MENINGITIS [None]
  - MENINGITIS ASEPTIC [None]
